FAERS Safety Report 5907528-3 (Version None)
Quarter: 2008Q4

REPORT INFORMATION
  Report Type: 
  Country: None (occurrence: None)
  Receive Date: 20081003
  Receipt Date: 20080922
  Transmission Date: 20090506
  Serious: Yes (Death, Hospitalization)
  Sender: FDA-Public Use
  Company Number: NSADSS2002010771

PATIENT
  Sex: Female

DRUGS (4)
  1. REMICADE [Suspect]
     Indication: RHEUMATOID ARTHRITIS
     Route: 041
  2. REMICADE [Suspect]
     Indication: PSORIATIC ARTHROPATHY
     Route: 041
  3. METHOTREXATE [Concomitant]
  4. ARAVA [Concomitant]

REACTIONS (6)
  - COCCIDIOIDOMYCOSIS [None]
  - COUGH [None]
  - PULMONARY MASS [None]
  - PYREXIA [None]
  - RESPIRATORY FAILURE [None]
  - VARICELLA [None]
